FAERS Safety Report 9983758 (Version 2)
Quarter: 2014Q1

REPORT INFORMATION
  Report Type: Spontaneous
  Country: US (occurrence: US)
  Receive Date: 20140307
  Receipt Date: 20140314
  Transmission Date: 20141002
  Serious: Yes (Hospitalization)
  Sender: FDA-Public Use
  Company Number: US-BAXTER-2014BAX010741

PATIENT
  Age: 59 Year
  Sex: Female
  Weight: 83 kg

DRUGS (10)
  1. DIANEAL LOW CALCIUM [Suspect]
     Indication: RENAL FAILURE CHRONIC
     Route: 033
  2. DIANEAL LOW CALCIUM [Suspect]
     Route: 033
  3. DIANEAL LOW CALCIUM [Suspect]
     Indication: RENAL FAILURE CHRONIC
     Route: 033
  4. DIANEAL LOW CALCIUM [Suspect]
     Route: 033
  5. METOPROLOL [Suspect]
     Indication: PRODUCT USED FOR UNKNOWN INDICATION
     Route: 048
  6. AMLODIPINE [Suspect]
     Indication: PRODUCT USED FOR UNKNOWN INDICATION
  7. DIOVAN [Suspect]
     Indication: PRODUCT USED FOR UNKNOWN INDICATION
  8. LASIX [Suspect]
     Indication: PRODUCT USED FOR UNKNOWN INDICATION
  9. LISINOPRIL [Suspect]
     Indication: HYPERTENSION
     Route: 048
  10. LISINOPRIL [Concomitant]
     Indication: HYPERTENSION
     Route: 048

REACTIONS (1)
  - Hypotension [Recovered/Resolved]
